FAERS Safety Report 6360384-4 (Version None)
Quarter: 2009Q3

REPORT INFORMATION
  Report Type: 
  Country: None (occurrence: None)
  Receive Date: 20090917
  Receipt Date: 20090907
  Transmission Date: 20100115
  Serious: Yes (Hospitalization)
  Sender: FDA-Public Use
  Company Number: FR-ELI_LILLY_AND_COMPANY-FR200812005483

PATIENT
  Age: 62 Year
  Sex: Female
  Weight: 63 kg

DRUGS (1)
  1. OPTRUMA [Suspect]
     Indication: OSTEOPENIA
     Dosage: 1 D/F, DAILY (1/D)
     Route: 065
     Dates: start: 20070601, end: 20080601

REACTIONS (1)
  - BREAST CANCER STAGE III [None]
